FAERS Safety Report 20789602 (Version 3)
Quarter: 2022Q4

REPORT INFORMATION
  Report Type: Spontaneous
  Country: None (occurrence: SE)
  Receive Date: 20220505
  Receipt Date: 20221107
  Transmission Date: 20230112
  Serious: Yes (Hospitalization, Other)
  Sender: FDA-Public Use
  Company Number: SE-HILL DERMACEUTICALS, INC.-2128476

PATIENT
  Age: 77 Year
  Sex: Male

DRUGS (3)
  1. TOLAK [Suspect]
     Active Substance: FLUOROURACIL
     Indication: Actinic keratosis
     Route: 061
     Dates: start: 20220322, end: 20220323
  2. LOSARTAN POTASSIUM [Concomitant]
     Active Substance: LOSARTAN POTASSIUM
     Route: 048
     Dates: start: 20150101
  3. FELODIPINE [Concomitant]
     Active Substance: FELODIPINE
     Route: 048
     Dates: start: 20150101

REACTIONS (3)
  - Blindness unilateral [Not Recovered/Not Resolved]
  - Retinal artery occlusion [Unknown]
  - Accidental exposure to product [None]

NARRATIVE: CASE EVENT DATE: 20220323
